FAERS Safety Report 11912787 (Version 1)
Quarter: 2016Q1

REPORT INFORMATION
  Report Type: Spontaneous
  Country: GB (occurrence: GB)
  Receive Date: 20160113
  Receipt Date: 20160113
  Transmission Date: 20160526
  Serious: Yes (Other)
  Sender: FDA-Public Use
  Company Number: GB-HETERO LABS LTD-1046446

PATIENT
  Sex: Female

DRUGS (4)
  1. STAVUDINE. [Concomitant]
     Active Substance: STAVUDINE
  2. DIDANOSINE. [Concomitant]
     Active Substance: DIDANOSINE
     Route: 065
  3. LAMIVUDINE. [Suspect]
     Active Substance: LAMIVUDINE
     Indication: HIV INFECTION
  4. VIRAMUNE [Concomitant]
     Active Substance: NEVIRAPINE

REACTIONS (4)
  - Premature separation of placenta [Recovered/Resolved]
  - Foetal death [Unknown]
  - Exposure during pregnancy [None]
  - Pregnancy [Recovered/Resolved]
